FAERS Safety Report 23523011 (Version 1)
Quarter: 2024Q1

REPORT INFORMATION
  Report Type: Spontaneous
  Country: US (occurrence: None)
  Receive Date: 20240213
  Receipt Date: 20240213
  Transmission Date: 20240409
  Serious: Yes (Other)
  Sender: FDA-Public Use
  Company Number: None

PATIENT
  Age: 56 Year
  Sex: Male
  Weight: 72.7 kg

DRUGS (7)
  1. TAMSULOSIN [Suspect]
     Active Substance: TAMSULOSIN
     Indication: Lower urinary tract symptoms
     Dosage: FREQUENCY : AT BEDTIME;?
     Route: 048
  2. TIZANIDINE [Concomitant]
     Active Substance: TIZANIDINE
  3. BACLOFEN [Concomitant]
     Active Substance: BACLOFEN
  4. OLANZAPINE [Concomitant]
     Active Substance: OLANZAPINE
  5. DIAZEPAM [Concomitant]
     Active Substance: DIAZEPAM
  6. ESCITALOPRAM [Concomitant]
     Active Substance: ESCITALOPRAM OXALATE
  7. LORAZEPAM [Concomitant]
     Active Substance: LORAZEPAM

REACTIONS (2)
  - Blood pressure orthostatic increased [None]
  - Hypotension [None]
